FAERS Safety Report 4987433-X (Version None)
Quarter: 2006Q2

REPORT INFORMATION
  Report Type: 
  Country: None (occurrence: None)
  Receive Date: 20060501
  Receipt Date: 20050613
  Transmission Date: 20061013
  Serious: Yes (Hospitalization, Other)
  Sender: FDA-Public Use
  Company Number: US-MERCK-0506USA02167

PATIENT
  Age: 78 Year
  Sex: Male
  Weight: 64 kg

DRUGS (2)
  1. VIOXX [Suspect]
     Indication: RHEUMATOID ARTHRITIS
     Route: 048
  2. TYLENOL (CAPLET) [Concomitant]
     Route: 065

REACTIONS (16)
  - CEREBROVASCULAR ACCIDENT [None]
  - CHEST INJURY [None]
  - DIABETES MELLITUS [None]
  - DYSPNOEA [None]
  - ESSENTIAL TREMOR [None]
  - HEMIPARESIS [None]
  - HYPERTENSION [None]
  - MICROCYTIC ANAEMIA [None]
  - MYOCARDIAL ISCHAEMIA [None]
  - ROAD TRAFFIC ACCIDENT [None]
  - SKIN LACERATION [None]
  - SYNCOPE [None]
  - TRANSIENT ISCHAEMIC ATTACK [None]
  - TREMOR [None]
  - UPPER GASTROINTESTINAL HAEMORRHAGE [None]
  - VOMITING [None]
